FAERS Safety Report 6704599-1 (Version None)
Quarter: 2010Q2

REPORT INFORMATION
  Report Type: 
  Country: None (occurrence: None)
  Receive Date: 20100430
  Receipt Date: 20100420
  Transmission Date: 20101027
  Serious: Yes (Hospitalization)
  Sender: FDA-Public Use
  Company Number: AU-ABBOTT-10P-008-0637562-00

PATIENT
  Sex: Female
  Weight: 52 kg

DRUGS (7)
  1. HUMIRA [Suspect]
     Indication: CROHN'S DISEASE
     Dosage: BASELINE
     Route: 058
     Dates: start: 20090109, end: 20090109
  2. HUMIRA [Suspect]
     Route: 058
     Dates: end: 20091201
  3. LOSEC I.V. [Concomitant]
     Indication: GASTROINTESTINAL ULCER
     Dates: start: 20070101
  4. EFFEXOR XR [Concomitant]
     Indication: DEPRESSION
     Dates: start: 20060101
  5. CALTRATE [Concomitant]
     Indication: ARTHRALGIA
     Dates: start: 20080101
  6. PREMARIN [Concomitant]
     Indication: HORMONE REPLACEMENT THERAPY
     Dates: start: 20070830
  7. PANADEINE CO [Concomitant]
     Indication: ANALGESIC THERAPY
     Dates: start: 20090101

REACTIONS (2)
  - INTESTINAL OBSTRUCTION [None]
  - POST PROCEDURAL HAEMORRHAGE [None]
